FAERS Safety Report 13988260 (Version 2)
Quarter: 2018Q2

REPORT INFORMATION
  Report Type: Spontaneous
  Country: DE (occurrence: DE)
  Receive Date: 20170919
  Receipt Date: 20180425
  Transmission Date: 20180711
  Serious: Yes (Hospitalization)
  Sender: FDA-Public Use
  Company Number: DE-TEVA-805791GER

PATIENT
  Age: 51 Year
  Sex: Male

DRUGS (2)
  1. FOLIC ACID. [Concomitant]
     Active Substance: FOLIC ACID
     Dosage: ON THE DAY AFTER METHOTREXATE ADMINISTRATION
  2. METHOTREXATE. [Suspect]
     Active Substance: METHOTREXATE
     Indication: IMMUNE THROMBOCYTOPENIC PURPURA
     Route: 048

REACTIONS (3)
  - Colitis ischaemic [Not Recovered/Not Resolved]
  - Product use in unapproved indication [Unknown]
  - Prescribed overdose [Not Recovered/Not Resolved]
